FAERS Safety Report 4433224-8 (Version None)
Quarter: 2004Q3

REPORT INFORMATION
  Report Type: 
  Country: None (occurrence: None)
  Receive Date: 20040823
  Receipt Date: 20040805
  Transmission Date: 20050211
  Serious: Yes (Hospitalization)
  Sender: FDA-Public Use
  Company Number: 2004-BP-06686MX

PATIENT
  Age: 73 Year
  Sex: Male

DRUGS (2)
  1. SECOTEX CAPSULES 0.4MG (TAMSULOSIN HYDROCHLORIDE) [Suspect]
     Indication: BENIGN PROSTATIC HYPERPLASIA
     Dosage: 0.4 MG (0.4 MG, O.D.) PO
     Route: 048
     Dates: start: 20040215, end: 20040515
  2. BI-EUGLUCON (SUGUAN) [Concomitant]

REACTIONS (3)
  - BENIGN PROSTATIC HYPERPLASIA [None]
  - CONDITION AGGRAVATED [None]
  - DRUG INEFFECTIVE [None]
